FAERS Safety Report 8449001-7 (Version None)
Quarter: 2012Q2

REPORT INFORMATION
  Report Type: 
  Country: None (occurrence: None)
  Receive Date: 20120619
  Receipt Date: 20120613
  Transmission Date: 20120825
  Serious: No
  Sender: FDA-Public Use
  Company Number: US-B.I. PHARMACEUTICALS,INC./RIDGEFIELD-2012-BP-13875PF

PATIENT
  Age: 28 Year
  Sex: Female

DRUGS (5)
  1. SPIRIVA [Suspect]
  2. XOPENEX [Suspect]
  3. ALBUTEROL [Suspect]
  4. ADVAIR DISKUS 100/50 [Suspect]
  5. PREDNISONE [Suspect]

REACTIONS (2)
  - DRUG INEFFECTIVE [None]
  - ASTHMA [None]
